FAERS Safety Report 11135684 (Version 3)
Quarter: 2015Q3

REPORT INFORMATION
  Report Type: Spontaneous
  Country: JP (occurrence: JP)
  Receive Date: 20150526
  Receipt Date: 20150806
  Transmission Date: 20151125
  Serious: Yes (Hospitalization, Other)
  Sender: FDA-Public Use
  Company Number: JP-PFIZER INC-2015176669

PATIENT
  Age: 68 Year
  Sex: Female
  Weight: 48 kg

DRUGS (6)
  1. NAUZELIN [Concomitant]
     Active Substance: DOMPERIDONE
     Dosage: UNK
     Dates: start: 20120510, end: 20120517
  2. PENTASA [Concomitant]
     Active Substance: MESALAMINE
     Dosage: UNK
     Dates: start: 20120522, end: 20120701
  3. LACB-R [Concomitant]
     Dosage: UNK
     Dates: start: 20120522, end: 20120701
  4. POLYFUL [Concomitant]
     Active Substance: CALCIUM POLYCARBOPHIL
     Dosage: UNK
     Dates: start: 20120427, end: 20120520
  5. CELECOX [Suspect]
     Active Substance: CELECOXIB
     Indication: BACK PAIN
     Dosage: 100 MG, 2X/DAY
     Route: 048
     Dates: start: 201110, end: 20120411
  6. LOPEMIN [Concomitant]
     Active Substance: LOPERAMIDE HYDROCHLORIDE
     Dosage: UNK
     Dates: start: 20120412, end: 20120419

REACTIONS (5)
  - Colitis microscopic [Unknown]
  - Nausea [Recovering/Resolving]
  - Pyrexia [Recovered/Resolved]
  - Gastric ulcer [Recovered/Resolved]
  - Diarrhoea [Recovered/Resolved]

NARRATIVE: CASE EVENT DATE: 201203
